FAERS Safety Report 6050205-1 (Version None)
Quarter: 2009Q1

REPORT INFORMATION
  Report Type: 
  Country: None (occurrence: None)
  Receive Date: 20090121
  Receipt Date: 20090113
  Transmission Date: 20090719
  Serious: Yes (Other)
  Sender: FDA-Public Use
  Company Number: 2008JP005014

PATIENT
  Age: 74 Year
  Sex: Female
  Weight: 48 kg

DRUGS (6)
  1. VESICARE [Suspect]
     Indication: HYPERTONIC BLADDER
     Dosage: 5 MG, UID/QD, ORAL
     Route: 048
     Dates: start: 20080916, end: 20081016
  2. LOSARTAN POTASSIUM [Concomitant]
  3. BENIDIPINE HYDROCHLORIDE (BENIDIPINE HYDROCHLORIDE) TABLET [Concomitant]
  4. FAMOTIDINE TABLET [Concomitant]
  5. ARICEPT [Concomitant]
  6. TIAPRIM (TIAPRIDE HYDROCHLORIDE) TABLET [Concomitant]

REACTIONS (4)
  - ALANINE AMINOTRANSFERASE INCREASED [None]
  - ASPARTATE AMINOTRANSFERASE INCREASED [None]
  - GAMMA-GLUTAMYLTRANSFERASE INCREASED [None]
  - LIVER DISORDER [None]
